FAERS Safety Report 9717371 (Version 1)
Quarter: 2013Q4

REPORT INFORMATION
  Report Type: Spontaneous
  Country: US (occurrence: US)
  Receive Date: 20131127
  Receipt Date: 20131127
  Transmission Date: 20140711
  Serious: No
  Sender: FDA-Public Use
  Company Number: US-GILEAD-2008-0019539

PATIENT
  Sex: Female
  Weight: 58.97 kg

DRUGS (11)
  1. LETAIRIS [Suspect]
     Indication: PULMONARY ARTERIAL HYPERTENSION
     Route: 048
     Dates: start: 20081124
  2. VENTAVIS [Concomitant]
  3. REVATIO [Concomitant]
  4. LASIX [Concomitant]
  5. SPIRONOLACTONE [Concomitant]
  6. LACTULOSE [Concomitant]
  7. K-DUR [Concomitant]
  8. OXYCONTIN [Concomitant]
  9. PERCODAN [Concomitant]
  10. AMBIEN [Concomitant]
  11. NEXIUM [Concomitant]

REACTIONS (1)
  - Fatigue [None]
